FAERS Safety Report 6389824-1 (Version None)
Quarter: 2009Q4

REPORT INFORMATION
  Report Type: 
  Country: None (occurrence: None)
  Receive Date: 20091003
  Receipt Date: 20080903
  Transmission Date: 20100525
  Serious: Yes (Hospitalization)
  Sender: FDA-Public Use
  Company Number: US024535

PATIENT
  Age: 27 Year
  Sex: Female
  Weight: 59 kg

DRUGS (6)
  1. PROVIGIL [Suspect]
     Indication: FATIGUE
     Dosage: ORAL
     Route: 048
  2. REBIF [Suspect]
     Indication: MULTIPLE SCLEROSIS
     Dosage: 3 IN ONE WEEK (44 MCG), SUBCUTANEOUS, 3 IN ONE WEEK (44 MCG), SUBCUTANEOUS
     Route: 058
     Dates: start: 20061117, end: 20070901
  3. REBIF [Suspect]
     Indication: MULTIPLE SCLEROSIS
     Dosage: 3 IN ONE WEEK (44 MCG), SUBCUTANEOUS, 3 IN ONE WEEK (44 MCG), SUBCUTANEOUS
     Route: 058
     Dates: start: 20080201
  4. KEPPRA [Suspect]
     Indication: CONVULSION
  5. CARBATROL [Suspect]
     Indication: CONVULSION
  6. IBUPROFEN [Concomitant]

REACTIONS (5)
  - CONDITION AGGRAVATED [None]
  - DEPRESSION [None]
  - INTENTIONAL OVERDOSE [None]
  - MARITAL PROBLEM [None]
  - SUICIDE ATTEMPT [None]
